FAERS Safety Report 7241830-0 (Version None)
Quarter: 2011Q1

REPORT INFORMATION
  Report Type: 
  Country: None (occurrence: None)
  Receive Date: 20110124
  Receipt Date: 20110120
  Transmission Date: 20110831
  Serious: Yes (Hospitalization, Other)
  Sender: FDA-Public Use
  Company Number: BR-ABBOTT-10P-020-0691281-00

PATIENT
  Sex: Female
  Weight: 42 kg

DRUGS (1)
  1. HUMIRA [Suspect]
     Indication: CROHN'S DISEASE
     Route: 058
     Dates: start: 20100901, end: 20101201

REACTIONS (6)
  - INTESTINAL OBSTRUCTION [None]
  - ABDOMINAL DISCOMFORT [None]
  - PYREXIA [None]
  - ABDOMINAL PAIN [None]
  - ENTERITIS [None]
  - WEIGHT DECREASED [None]
